FAERS Safety Report 19621493 (Version 1)
Quarter: 2021Q3

REPORT INFORMATION
  Report Type: Spontaneous
  Country: US (occurrence: US)
  Receive Date: 20210728
  Receipt Date: 20210728
  Transmission Date: 20211014
  Serious: Yes (Hospitalization)
  Sender: FDA-Public Use
  Company Number: US-JNJFOC-20210742277

PATIENT
  Sex: Male

DRUGS (1)
  1. RISPERDAL [Suspect]
     Active Substance: RISPERIDONE
     Indication: BIPOLAR DISORDER
     Dosage: HALF TABLET AT BREAKFAST, HALF TABLET AT NIGHT AND 1 TABLET 30 MINUTES BEFORE BEDTIME
     Route: 048
     Dates: start: 200008, end: 20010108

REACTIONS (2)
  - Weight increased [Unknown]
  - Hepatic enzyme increased [Recovering/Resolving]
